APPROVED DRUG PRODUCT: SARAFEM
Active Ingredient: FLUOXETINE HYDROCHLORIDE
Strength: EQ 10MG BASE **Federal Register determination that product was not discontinued or withdrawn for safety or effectiveness reasons**
Dosage Form/Route: CAPSULE;ORAL
Application: N018936 | Product #007
Applicant: ELI LILLY AND CO
Approved: Jul 6, 2000 | RLD: Yes | RS: No | Type: DISCN